FAERS Safety Report 4325025-6 (Version None)
Quarter: 2004Q1

REPORT INFORMATION
  Report Type: 
  Country: None (occurrence: None)
  Receive Date: 20040326
  Receipt Date: 20040322
  Transmission Date: 20041129
  Serious: Yes (Hospitalization)
  Sender: FDA-Public Use
  Company Number: JP-ROCHE-362541

PATIENT
  Age: 32 Year
  Sex: Female

DRUGS (13)
  1. MYCOPHENOLATE MOFETIL [Suspect]
     Route: 048
     Dates: start: 20021127, end: 20021203
  2. MYCOPHENOLATE MOFETIL [Suspect]
     Route: 048
     Dates: start: 20021204, end: 20030220
  3. MYCOPHENOLATE MOFETIL [Suspect]
     Route: 048
     Dates: start: 20030221, end: 20031030
  4. MYCOPHENOLATE MOFETIL [Suspect]
     Route: 048
     Dates: start: 20021031
  5. NEORAL [Suspect]
     Indication: DRUG USE FOR UNKNOWN INDICATION
     Route: 048
     Dates: start: 20021127, end: 20030919
  6. MEDROL [Suspect]
     Indication: DRUG USE FOR UNKNOWN INDICATION
     Route: 048
     Dates: start: 20021127
  7. PROGRAF [Concomitant]
     Route: 048
     Dates: start: 20031020
  8. SIMULECT [Concomitant]
     Dosage: TWO DOSES ONLY
     Route: 042
     Dates: start: 20021128, end: 20021202
  9. SOLU-MEDROL [Concomitant]
     Route: 041
     Dates: start: 20021128, end: 20031019
  10. SANDIMMUNE [Concomitant]
     Route: 041
     Dates: start: 20021128, end: 20021201
  11. SPANIDIN [Concomitant]
     Route: 041
     Dates: start: 20031017, end: 20031022
  12. BIOFERMIN [Concomitant]
     Route: 048
     Dates: start: 20021204, end: 20030411
  13. FUNGIZONE [Concomitant]
     Dates: start: 20030221, end: 20030314

REACTIONS (6)
  - ACNE [None]
  - DIARRHOEA [None]
  - FUNGAL INFECTION [None]
  - LYMPHOCELE [None]
  - PHARYNGITIS [None]
  - RENAL TRANSPLANT [None]
